FAERS Safety Report 15322157 (Version 1)
Quarter: 2018Q3

REPORT INFORMATION
  Report Type: Spontaneous
  Country: US (occurrence: US)
  Receive Date: 20180827
  Receipt Date: 20180827
  Transmission Date: 20181010
  Serious: Yes (Disabling, Other)
  Sender: FDA-Public Use
  Company Number: US-JNJFOC-20180832313

PATIENT
  Age: 63 Year
  Sex: Male

DRUGS (3)
  1. INVOKANA [Suspect]
     Active Substance: CANAGLIFLOZIN
     Indication: PRODUCT USED FOR UNKNOWN INDICATION
     Route: 048
     Dates: start: 2014
  2. INSULIN [Concomitant]
     Active Substance: INSULIN NOS
     Indication: PRODUCT USED FOR UNKNOWN INDICATION
     Dosage: ONE SYRINGE
     Route: 065
  3. NOVOLIN [Concomitant]
     Active Substance: INSULIN HUMAN
     Indication: PRODUCT USED FOR UNKNOWN INDICATION
     Dosage: USE PER SLIDING SCALE 1 UNIT PER FOR EVERY 10 POINTS OVER 200
     Route: 065

REACTIONS (4)
  - Gangrene [Unknown]
  - Osteomyelitis [Unknown]
  - Leg amputation [Unknown]
  - Diabetic foot [Unknown]

NARRATIVE: CASE EVENT DATE: 20141021
